FAERS Safety Report 4512900-2 (Version None)
Quarter: 2004Q4

REPORT INFORMATION
  Report Type: 
  Country: None (occurrence: None)
  Receive Date: 20041123
  Receipt Date: 20041123
  Transmission Date: 20050328
  Serious: Yes (Hospitalization, Disabling)
  Sender: FDA-Public Use
  Company Number: None

PATIENT
  Age: 60 Year
  Sex: Female
  Weight: 76.2043 kg

DRUGS (4)
  1. CELEBREX [Suspect]
     Indication: ARTHRITIS
     Dosage: ORAL DAILY X ONE OR TWO
     Route: 048
  2. PREVACID [Concomitant]
  3. COUMADIN [Concomitant]
  4. COMBIVENT MDI [Concomitant]

REACTIONS (1)
  - CEREBROVASCULAR ACCIDENT [None]
